FAERS Safety Report 15399447 (Version 1)
Quarter: 2018Q3

REPORT INFORMATION
  Report Type: Spontaneous
  Country: US (occurrence: US)
  Receive Date: 20180918
  Receipt Date: 20180918
  Transmission Date: 20181010
  Serious: No
  Sender: FDA-Public Use
  Company Number: US-AMGEN-USASP2018087480

PATIENT
  Age: 70 Year
  Sex: Female

DRUGS (18)
  1. VENCLEXTA [Suspect]
     Active Substance: VENETOCLAX
     Dosage: 300 MG, QD (1 IN 1 D)
     Route: 048
     Dates: start: 20180510
  2. ALLOPURINOL. [Concomitant]
     Active Substance: ALLOPURINOL
     Indication: PRODUCT USED FOR UNKNOWN INDICATION
     Dosage: UNK
  3. PANTOPRAZOLE [Concomitant]
     Active Substance: PANTOPRAZOLE
     Indication: GASTROOESOPHAGEAL REFLUX DISEASE
     Dosage: UNK
  4. CALCIUM [Concomitant]
     Active Substance: CALCIUM
     Indication: PRODUCT USED FOR UNKNOWN INDICATION
     Dosage: UNK
  5. VENCLEXTA [Suspect]
     Active Substance: VENETOCLAX
     Dosage: 100 MG, QD (1 IN 1 D)
     Route: 048
     Dates: start: 20180410, end: 20180417
  6. LEVAQUIN [Concomitant]
     Active Substance: LEVOFLOXACIN
     Indication: PROPHYLAXIS
     Dosage: UNK
  7. VITAMIN B3 [Concomitant]
     Active Substance: NIACIN
     Indication: PRODUCT USED FOR UNKNOWN INDICATION
     Dosage: UNK
  8. SLOW MAG [Concomitant]
     Active Substance: MAGNESIUM CHLORIDE
     Indication: PRODUCT USED FOR UNKNOWN INDICATION
     Dosage: UNK
  9. VENCLEXTA [Suspect]
     Active Substance: VENETOCLAX
     Indication: CHRONIC LYMPHOCYTIC LEUKAEMIA
     Dosage: 20 MG, QD (1 IN 1 D)
     Route: 048
     Dates: start: 20180220, end: 20180227
  10. ACYCLOVIR. [Concomitant]
     Active Substance: ACYCLOVIR
     Indication: PROPHYLAXIS
     Dosage: UNK
  11. NEUPOGEN [Suspect]
     Active Substance: FILGRASTIM
     Indication: WHITE BLOOD CELL COUNT DECREASED
     Dosage: UNK
     Route: 065
     Dates: start: 2018
  12. VENCLEXTA [Suspect]
     Active Substance: VENETOCLAX
     Dosage: 20 MG, QD (1 IN 1 D)
     Route: 048
     Dates: start: 20180313, end: 20180329
  13. PILOCARPINE. [Concomitant]
     Active Substance: PILOCARPINE
     Indication: DRY MOUTH
     Dosage: UNK
  14. VENCLEXTA [Suspect]
     Active Substance: VENETOCLAX
     Dosage: 50 MG, QD (1 IN 1 D)
     Route: 048
     Dates: start: 20180228, end: 201803
  15. VENCLEXTA [Suspect]
     Active Substance: VENETOCLAX
     Dosage: 50 MG, QD (1 IN 1 D)
     Route: 048
     Dates: start: 20180330, end: 20180409
  16. VENCLEXTA [Suspect]
     Active Substance: VENETOCLAX
     Dosage: 200 MG, QD (1 IN 1 D)
     Route: 048
     Dates: start: 20180418, end: 20180509
  17. BIOTIN [Concomitant]
     Active Substance: BIOTIN
     Indication: PRODUCT USED FOR UNKNOWN INDICATION
     Dosage: UNK
  18. TRIAMTERENE. [Concomitant]
     Active Substance: TRIAMTERENE
     Indication: PRODUCT USED FOR UNKNOWN INDICATION
     Dosage: UNK

REACTIONS (1)
  - Bone pain [Not Recovered/Not Resolved]

NARRATIVE: CASE EVENT DATE: 2018
